FAERS Safety Report 5527408-5 (Version None)
Quarter: 2007Q4

REPORT INFORMATION
  Report Type: 
  Country: None (occurrence: None)
  Receive Date: 20071123
  Receipt Date: 20071114
  Transmission Date: 20080405
  Serious: Yes (Hospitalization)
  Sender: FDA-Public Use
  Company Number: 2007BI022980

PATIENT
  Age: 62 Year
  Sex: Female
  Weight: 77.27 kg

DRUGS (1)
  1. NATALIZUMAB [Suspect]
     Indication: MULTIPLE SCLEROSIS
     Dosage: 300 MG; QM; IV
     Route: 042
     Dates: start: 20070207, end: 20070821

REACTIONS (2)
  - HEPATITIS [None]
  - VIRAL INFECTION [None]
